FAERS Safety Report 11745555 (Version 1)
Quarter: 2015Q4

REPORT INFORMATION
  Report Type: Spontaneous
  Country: US (occurrence: None)
  Receive Date: 20151116
  Receipt Date: 20151116
  Transmission Date: 20160304
  Serious: No
  Sender: FDA-Public Use
  Company Number: None

PATIENT
  Age: 42 Year
  Sex: Male
  Weight: 88.91 kg

DRUGS (6)
  1. LATUDA [Suspect]
     Active Substance: LURASIDONE HYDROCHLORIDE
     Indication: PSYCHOTIC DISORDER
     Dosage: 1
     Route: 048
     Dates: start: 20140909, end: 20151112
  2. CITOLOPRAM [Concomitant]
  3. DEPAKOTE [Concomitant]
     Active Substance: DIVALPROEX SODIUM
  4. BUSPIRONE [Concomitant]
     Active Substance: BUSPIRONE HYDROCHLORIDE
  5. TRAZODONE [Concomitant]
     Active Substance: TRAZODONE HYDROCHLORIDE
  6. CLONAZAPAM [Concomitant]
     Active Substance: CLONAZEPAM

REACTIONS (5)
  - Erectile dysfunction [None]
  - Back pain [None]
  - Dystonia [None]
  - Emotional disorder [None]
  - Muscle spasms [None]

NARRATIVE: CASE EVENT DATE: 20140909
